FAERS Safety Report 25482690 (Version 1)
Quarter: 2025Q2

REPORT INFORMATION
  Report Type: Spontaneous
  Country: US (occurrence: US)
  Receive Date: 20250626
  Receipt Date: 20250626
  Transmission Date: 20250716
  Serious: Yes (Other)
  Sender: QILU ANTIBIOTICS PHARMACEUTICAL
  Company Number: US-QILU ANTIBIOTICS PHARMACEUTICAL CO. LTD-QLA-000054-2025

PATIENT
  Age: 34 Year

DRUGS (1)
  1. CEFTRIAXONE [Suspect]
     Active Substance: CEFTRIAXONE
     Indication: Skin test
     Route: 065

REACTIONS (1)
  - Type I hypersensitivity [Unknown]
